FAERS Safety Report 9519372 (Version 1)
Quarter: 2013Q1

REPORT INFORMATION
  Report Type: Spontaneous
  Country: US (occurrence: None)
  Receive Date: 20130305
  Receipt Date: 20130305
  Transmission Date: 20140127
  Serious: Yes (Disabling, Other)
  Sender: FDA-Public Use
  Company Number: 163-21880-12070196

PATIENT
  Age: 85 Year
  Sex: Female
  Weight: 75.75 kg

DRUGS (6)
  1. REVLIMID (LENALIDOMIDE) (CAPSULES) [Suspect]
     Indication: PLASMA CELL MYELOMA
     Dosage: 10 MG, 1 IN 1 D, PO
     Route: 048
     Dates: start: 20120621, end: 201207
  2. REVLIMID (LENALIDOMIDE) (CAPSULES) [Suspect]
     Indication: MYELODYSPLASTIC SYNDROME
     Dosage: 10 MG, 1 IN 1 D, PO
     Route: 048
     Dates: start: 20120621, end: 201207
  3. ENALAPRIL (ENALAPRIL) (TABLETS) [Concomitant]
  4. FUROSEMIDE (FUROSEMIDE) (TABLETS) [Concomitant]
  5. MELOXICAM (MELOXICAM) (UNKNOWN) [Concomitant]
  6. NOVOLIN 70/30 (HUMAN MIXTARD) (INJECTION) [Concomitant]

REACTIONS (5)
  - Somnolence [None]
  - Drug intolerance [None]
  - Fatigue [None]
  - Malaise [None]
  - Sluggishness [None]
